FAERS Safety Report 26145692 (Version 1)
Quarter: 2025Q4

REPORT INFORMATION
  Report Type: Spontaneous
  Country: US (occurrence: US)
  Receive Date: 20251211
  Receipt Date: 20251211
  Transmission Date: 20260117
  Serious: No
  Sender: TEVA
  Company Number: US-TEVA-VS-3401102

PATIENT

DRUGS (1)
  1. AMPHETAMINE\DEXTROAMPHETAMINE [Suspect]
     Active Substance: AMPHETAMINE\DEXTROAMPHETAMINE
     Indication: Product used for unknown indication
     Dosage: EXTENDED RELEASE CAPSULES
     Route: 048

REACTIONS (6)
  - Inflammation [Unknown]
  - Back pain [Unknown]
  - Dyspepsia [Unknown]
  - Abdominal pain upper [Unknown]
  - Muscle spasms [Unknown]
  - Arthralgia [Unknown]
